FAERS Safety Report 8947077 (Version 1)
Quarter: 2012Q4

REPORT INFORMATION
  Report Type: 
  Country: US (occurrence: US)
  Receive Date: 20121205
  Receipt Date: 20121205
  Transmission Date: 20130627
  Serious: No
  Sender: FDA-Public Use
  Company Number: US-PFIZER INC-2012304421

PATIENT
  Age: 41 Year
  Sex: Female
  Weight: 64.4 kg

DRUGS (2)
  1. LYRICA [Suspect]
     Indication: FIBROMYALGIA
     Dosage: 75 mg, daily
     Dates: start: 201211
  2. SYNTHROID [Concomitant]
     Indication: THYROID DISORDER
     Dosage: 125 ug, daily

REACTIONS (1)
  - Weight increased [Not Recovered/Not Resolved]
